FAERS Safety Report 25538514 (Version 2)
Quarter: 2025Q3

REPORT INFORMATION
  Report Type: Spontaneous
  Country: US (occurrence: US)
  Receive Date: 20250710
  Receipt Date: 20250716
  Transmission Date: 20251021
  Serious: No
  Sender: BIOMARIN
  Company Number: US-SANOFI-02560527

PATIENT
  Age: 6 Month
  Sex: Male

DRUGS (1)
  1. ALDURAZYME [Suspect]
     Active Substance: LARONIDASE
     Indication: Mucopolysaccharidosis I
     Dosage: 5.8 MG, QW
     Dates: end: 20250612

REACTIONS (1)
  - No adverse event [Unknown]
